FAERS Safety Report 8814503 (Version 3)
Quarter: 2012Q4

REPORT INFORMATION
  Report Type: 
  Country: IT (occurrence: IT)
  Receive Date: 20120928
  Receipt Date: 20121124
  Transmission Date: 20130627
  Serious: Yes (Death, Life-Threatening, Hospitalization, Other)
  Sender: FDA-Public Use
  Company Number: PHHY2012IT072473

PATIENT
  Age: 48 Year
  Sex: Female

DRUGS (7)
  1. AFINITOR [Suspect]
     Indication: METASTATIC RENAL CELL CARCINOMA
     Dosage: 10 mg, daily
     Route: 048
     Dates: start: 20120711, end: 20120804
  2. FUROSEMIDE [Concomitant]
     Dosage: 50 mg, daily
  3. LEVOTHYROXINE [Concomitant]
     Dosage: 100 ug, daily
  4. BISOPROLOL [Concomitant]
     Dosage: 1.25 mg, daily
  5. LANSOPRAZOLE [Concomitant]
     Dosage: 30 mg, daily
  6. TIOTROPIUM [Concomitant]
     Dosage: 2.5 ug, daily
  7. DEXAMETHASONE [Concomitant]
     Dosage: 16 mg, UNK
     Route: 042

REACTIONS (5)
  - Pulmonary embolism [Fatal]
  - Respiratory failure [Fatal]
  - Neoplasm progression [Fatal]
  - Malignant neoplasm progression [Fatal]
  - Lymphangiosis carcinomatosa [Unknown]
